FAERS Safety Report 18113923 (Version 3)
Quarter: 2022Q1

REPORT INFORMATION
  Report Type: Spontaneous
  Country: US (occurrence: US)
  Receive Date: 20200805
  Receipt Date: 20220331
  Transmission Date: 20220424
  Serious: Yes (Other)
  Sender: FDA-Public Use
  Company Number: US-GLAXOSMITHKLINE-US2020150828

PATIENT
  Sex: Female

DRUGS (10)
  1. RANITIDINE [Suspect]
     Active Substance: RANITIDINE
  2. ZANTAC [Suspect]
     Active Substance: RANITIDINE HYDROCHLORIDE
  3. ZANTAC [Suspect]
     Active Substance: RANITIDINE HYDROCHLORIDE
     Indication: Dyspepsia
     Dosage: 300 MG, QD
     Route: 065
     Dates: start: 199501, end: 201908
  4. ZANTAC [Suspect]
     Active Substance: RANITIDINE HYDROCHLORIDE
     Indication: Nausea
     Dosage: 300 MG, QD
     Route: 065
     Dates: start: 199501, end: 201908
  5. ZANTAC [Suspect]
     Active Substance: RANITIDINE HYDROCHLORIDE
     Indication: Dyspepsia
     Dosage: 300 MG, QD
     Route: 065
     Dates: start: 199501, end: 201908
  6. ZANTAC [Suspect]
     Active Substance: RANITIDINE HYDROCHLORIDE
     Indication: Nausea
     Dosage: 300 MG, QD
     Route: 065
     Dates: start: 199501, end: 201908
  7. RANITIDINE [Suspect]
     Active Substance: RANITIDINE
     Indication: Dyspepsia
     Dosage: 150 MG, QD
     Route: 065
     Dates: start: 199701, end: 201908
  8. RANITIDINE [Suspect]
     Active Substance: RANITIDINE
     Indication: Nausea
     Dosage: UNK
  9. RANITIDINE [Suspect]
     Active Substance: RANITIDINE
     Indication: Dyspepsia
     Dosage: 150 MG, QD
     Route: 065
     Dates: start: 199701, end: 201908
  10. RANITIDINE [Suspect]
     Active Substance: RANITIDINE
     Indication: Nausea
     Dosage: UNK

REACTIONS (2)
  - Bladder cancer [Unknown]
  - Gastric cancer [Unknown]
